FAERS Safety Report 12793773 (Version 2)
Quarter: 2016Q4

REPORT INFORMATION
  Report Type: Spontaneous
  Country: ES (occurrence: ES)
  Receive Date: 20160929
  Receipt Date: 20161221
  Transmission Date: 20170207
  Serious: Yes (Hospitalization, Other)
  Sender: FDA-Public Use
  Company Number: ES-SA-2016SA144402

PATIENT
  Age: 37 Year
  Sex: Female
  Weight: 55 kg

DRUGS (6)
  1. PARACETAMOL [Concomitant]
     Active Substance: ACETAMINOPHEN
     Indication: PREMEDICATION
     Dosage: 1 GRAMO EN DOSIS UNICA
     Route: 042
     Dates: start: 20160711, end: 20160713
  2. ACICLOVIR KERN PHARMA [Concomitant]
     Indication: PROPHYLAXIS
     Route: 048
     Dates: start: 20160711
  3. LEMTRADA [Suspect]
     Active Substance: ALEMTUZUMAB
     Indication: MULTIPLE SCLEROSIS
     Dosage: 12 MG UNA VEZ AL DIA
     Route: 042
     Dates: start: 20160711, end: 20160712
  4. URBASON [Concomitant]
     Active Substance: METHYLPREDNISOLONE
     Indication: PREMEDICATION
     Dates: start: 20160711, end: 20160713
  5. DEXCHLORPHENIRAMINE [Concomitant]
     Active Substance: DEXCHLORPHENIRAMINE
     Indication: PREMEDICATION
     Dosage: 5 MG CADA 24 HORAS
     Route: 042
     Dates: start: 20160710, end: 20160713
  6. OMEPRAZOLE. [Concomitant]
     Active Substance: OMEPRAZOLE
     Indication: PROPHYLAXIS
     Dosage: 40 MG CADA 24 HORAS
     Route: 042
     Dates: start: 20160710

REACTIONS (5)
  - Cytokine release syndrome [Recovered/Resolved]
  - Pericarditis [Recovering/Resolving]
  - Acute interstitial pneumonitis [Recovered/Resolved]
  - Bradycardia [Not Recovered/Not Resolved]
  - Chest discomfort [Not Recovered/Not Resolved]

NARRATIVE: CASE EVENT DATE: 20160713
